FAERS Safety Report 7074146-6 (Version None)
Quarter: 2010Q4

REPORT INFORMATION
  Report Type: 
  Country: None (occurrence: None)
  Receive Date: 20101029
  Receipt Date: 20101020
  Transmission Date: 20110411
  Serious: Yes (Other)
  Sender: FDA-Public Use
  Company Number: JP-PFIZER INC-2010133596

PATIENT
  Age: 74 Year
  Sex: Female
  Weight: 46 kg

DRUGS (11)
  1. SILDENAFIL CITRATE [Suspect]
     Indication: PULMONARY HYPERTENSION
     Dosage: 20 MG, 3X/DAY
     Route: 048
     Dates: start: 20100406, end: 20100101
  2. SILDENAFIL CITRATE [Suspect]
     Dosage: 20 MG, 3X/DAY
     Route: 048
     Dates: start: 20100101, end: 20100907
  3. TRACLEER [Concomitant]
     Dosage: UNK
     Route: 048
     Dates: start: 20071002
  4. DORNER [Concomitant]
     Dosage: UNK
     Route: 048
     Dates: start: 20070201
  5. ADALAT CC [Concomitant]
     Dosage: UNK
     Route: 048
  6. AMOBAN [Concomitant]
     Dosage: UNK
     Route: 048
     Dates: start: 20050801
  7. GASTER [Concomitant]
     Dosage: UNK
     Route: 048
  8. ANPLAG [Concomitant]
     Dosage: UNK
     Route: 048
     Dates: start: 20050701
  9. WARFARIN [Concomitant]
     Dosage: UNK
     Route: 048
     Dates: start: 20050701
  10. TORSEMIDE [Concomitant]
     Dosage: UNK
     Route: 048
     Dates: start: 20070901
  11. VITAMEDIN CAPSULE [Concomitant]
     Dosage: UNK
     Route: 048
     Dates: start: 20080201

REACTIONS (2)
  - BRAIN NATRIURETIC PEPTIDE INCREASED [None]
  - DIZZINESS [None]
